FAERS Safety Report 15124880 (Version 2)
Quarter: 2018Q3

REPORT INFORMATION
  Report Type: Spontaneous
  Country: IT (occurrence: IT)
  Receive Date: 20180710
  Receipt Date: 20180725
  Transmission Date: 20181010
  Serious: Yes (Hospitalization, Other)
  Sender: FDA-Public Use
  Company Number: PHHY2018IT037710

PATIENT
  Age: 52 Year
  Sex: Male

DRUGS (2)
  1. CISPLATIN. [Suspect]
     Active Substance: CISPLATIN
     Indication: PRODUCT USED FOR UNKNOWN INDICATION
     Dosage: 1 CYCLICAL
     Route: 065
     Dates: start: 201509
  2. DOCETAXEL. [Suspect]
     Active Substance: DOCETAXEL
     Indication: PRODUCT USED FOR UNKNOWN INDICATION
     Dosage: UNK, QW  WEEKLY ADMINISTRATIONS IN CYCLE
     Route: 065
     Dates: start: 201509

REACTIONS (3)
  - Off label use [Unknown]
  - Neurotoxicity [Unknown]
  - Atypical haemolytic uraemic syndrome [Unknown]
